FAERS Safety Report 24379141 (Version 2)
Quarter: 2024Q4

REPORT INFORMATION
  Report Type: Report from Study
  Country: BR (occurrence: BR)
  Receive Date: 20240930
  Receipt Date: 20241002
  Transmission Date: 20250115
  Serious: Yes (Other)
  Sender: MYLAN
  Company Number: BR-MYLANLABS-2024M1086759

PATIENT
  Sex: Female
  Weight: 68 kg

DRUGS (2)
  1. XALATAN [Suspect]
     Active Substance: LATANOPROST
     Indication: Glaucoma
     Dosage: 1 GTT DROPS, PM (ONE DROP IN EACH EYE AT NIGHT)
     Route: 047
     Dates: start: 202406
  2. LATANOPROST\TIMOLOL MALEATE [Suspect]
     Active Substance: LATANOPROST\TIMOLOL MALEATE
     Indication: Glaucoma
     Dosage: UNK
     Route: 047

REACTIONS (2)
  - Fallopian tube disorder [Not Recovered/Not Resolved]
  - Influenza [Unknown]
